FAERS Safety Report 24662231 (Version 5)
Quarter: 2025Q1

REPORT INFORMATION
  Report Type: Report from Study
  Country: US (occurrence: US)
  Receive Date: 20241125
  Receipt Date: 20250321
  Transmission Date: 20250409
  Serious: Yes (Hospitalization, Other)
  Sender: SUNOVION
  Company Number: US-SUMITOMO PHARMA SWITZERLAND GMBH-2024SPA005146

PATIENT

DRUGS (2)
  1. ORGOVYX [Suspect]
     Active Substance: RELUGOLIX
     Indication: Prostate cancer
     Route: 048
  2. ORGOVYX [Suspect]
     Active Substance: RELUGOLIX
     Dosage: 120 MG, QD
     Route: 048
     Dates: start: 20240912

REACTIONS (9)
  - Spinal cord injury [Unknown]
  - Hypotension [Unknown]
  - Platelet count decreased [Unknown]
  - Blood magnesium decreased [Unknown]
  - Fall [Unknown]
  - Pain [Unknown]
  - Fatigue [Unknown]
  - Hot flush [Unknown]
  - Asthenia [Unknown]
